FAERS Safety Report 9674889 (Version 1)
Quarter: 2013Q4

REPORT INFORMATION
  Report Type: Spontaneous
  Country: BR (occurrence: BR)
  Receive Date: 20131107
  Receipt Date: 20131107
  Transmission Date: 20140711
  Serious: Yes (Death, Other)
  Sender: FDA-Public Use
  Company Number: PHHY2013BR125475

PATIENT
  Age: 54 Year
  Sex: Female

DRUGS (1)
  1. ESTRADOT [Suspect]
     Indication: HOT FLUSH
     Dosage: 1 DF, BIW
     Route: 062

REACTIONS (6)
  - Dementia Alzheimer^s type [Fatal]
  - Cerebrovascular accident [Unknown]
  - Fall [Unknown]
  - Femur fracture [Unknown]
  - Application site hypersensitivity [Recovered/Resolved]
  - Application site vesicles [Recovered/Resolved]
